FAERS Safety Report 6396900-6 (Version None)
Quarter: 2009Q4

REPORT INFORMATION
  Report Type: 
  Country: None (occurrence: None)
  Receive Date: 20091012
  Receipt Date: 20090622
  Transmission Date: 20100525
  Serious: No
  Sender: FDA-Public Use
  Company Number: CA-ASTRAZENECA-2009UW16678

PATIENT
  Sex: Male

DRUGS (6)
  1. SYMBICORT [Suspect]
     Route: 055
     Dates: start: 20090401
  2. CRESTOR [Suspect]
     Route: 048
     Dates: start: 20060101
  3. ASPIRIN [Concomitant]
  4. CELEBREX [Concomitant]
  5. COZAAR [Concomitant]
  6. DILANTIN [Concomitant]

REACTIONS (3)
  - DYSGEUSIA [None]
  - DYSPHONIA [None]
  - HEART RATE INCREASED [None]
